FAERS Safety Report 8113702-0 (Version None)
Quarter: 2012Q1

REPORT INFORMATION
  Report Type: 
  Country: None (occurrence: None)
  Receive Date: 20120203
  Receipt Date: 20120123
  Transmission Date: 20120608
  Serious: Yes (Hospitalization)
  Sender: FDA-Public Use
  Company Number: US-UCBSA-050344

PATIENT
  Sex: Male

DRUGS (5)
  1. VIMPAT [Suspect]
     Dosage: FOR ONE DAY
     Route: 048
  2. VIMPAT [Suspect]
     Dosage: FOR 2 DAYS
     Route: 048
  3. VIMPAT [Suspect]
     Indication: EPILEPSY
     Dosage: UNKNOWN DOSE
     Route: 048
     Dates: start: 20111025
  4. SAVELLA [Concomitant]
     Indication: FIBROMYALGIA
     Dates: start: 20110101
  5. DEPAKOTE [Concomitant]
     Dosage: 1500 MG DAILY

REACTIONS (1)
  - CONVULSION [None]
